FAERS Safety Report 7731123-7 (Version None)
Quarter: 2011Q3

REPORT INFORMATION
  Report Type: 
  Country: None (occurrence: None)
  Receive Date: 20110906
  Receipt Date: 20110906
  Transmission Date: 20111222
  Serious: Yes (Life-Threatening, Hospitalization, Other)
  Sender: FDA-Public Use
  Company Number: None

PATIENT
  Age: 37 Year
  Sex: Male
  Weight: 79 kg

DRUGS (2)
  1. CLOZAPINE [Concomitant]
     Indication: SCHIZOPHRENIA
     Dosage: 100MG/25MG -400MG TOTAL MAX-
     Route: 048
     Dates: start: 20110809, end: 20110821
  2. RISPERDAL CONSTA [Suspect]
     Indication: SCHIZOPHRENIA
     Dosage: 25MG
     Route: 030
     Dates: start: 20110804, end: 20110818

REACTIONS (3)
  - NEUROLEPTIC MALIGNANT SYNDROME [None]
  - MENINGITIS [None]
  - SEPSIS [None]
